FAERS Safety Report 21788770 (Version 2)
Quarter: 2023Q1

REPORT INFORMATION
  Report Type: Spontaneous
  Country: US (occurrence: US)
  Receive Date: 20221228
  Receipt Date: 20230203
  Transmission Date: 20230417
  Serious: Yes (Hospitalization, Other)
  Sender: FDA-Public Use
  Company Number: US-BIOVITRUM-2022US15604

PATIENT
  Sex: Male

DRUGS (24)
  1. SYNAGIS [Suspect]
     Active Substance: PALIVIZUMAB
     Indication: Congenital pulmonary artery anomaly
     Dates: start: 20221026
  2. SYNAGIS [Suspect]
     Active Substance: PALIVIZUMAB
     Dosage: 100 MG VIAL 0.65 ML GIVEN IN LUL
     Dates: start: 20221104
  3. VITAMIN D3 [Concomitant]
     Active Substance: CHOLECALCIFEROL
     Indication: Product used for unknown indication
     Dates: start: 20220820
  4. CLONIDINE [Concomitant]
     Active Substance: CLONIDINE
     Indication: Product used for unknown indication
     Dates: start: 20221208, end: 20221222
  5. CLONIDINE [Concomitant]
     Active Substance: CLONIDINE
     Dates: start: 20221208
  6. CLONIDINE [Concomitant]
     Active Substance: CLONIDINE
     Dates: start: 20221209
  7. CLONIDINE [Concomitant]
     Active Substance: CLONIDINE
     Dates: start: 20221210
  8. CLONIDINE [Concomitant]
     Active Substance: CLONIDINE
     Dates: start: 20221211
  9. CLONIDINE [Concomitant]
     Active Substance: CLONIDINE
     Dates: start: 20221212
  10. CLONIDINE [Concomitant]
     Active Substance: CLONIDINE
     Dates: start: 20221213
  11. CLONIDINE [Concomitant]
     Active Substance: CLONIDINE
     Dates: start: 20221214
  12. CLONIDINE [Concomitant]
     Active Substance: CLONIDINE
     Dates: start: 20221215
  13. LASIX [Concomitant]
     Active Substance: FUROSEMIDE
     Indication: Product used for unknown indication
     Dosage: TAKE 0.4 MLS VIA NG-TUBE 2 TIMES DAILY. - PER NG TUBE
     Dates: start: 20221208, end: 20230106
  14. DOLOPHINE [Concomitant]
     Active Substance: METHADONE HYDROCHLORIDE
     Indication: Product used for unknown indication
     Dates: start: 20221208, end: 20221222
  15. DOLOPHINE [Concomitant]
     Active Substance: METHADONE HYDROCHLORIDE
     Dates: start: 20221208
  16. DOLOPHINE [Concomitant]
     Active Substance: METHADONE HYDROCHLORIDE
     Dates: start: 20221209
  17. DOLOPHINE [Concomitant]
     Active Substance: METHADONE HYDROCHLORIDE
     Dates: start: 20221210
  18. DOLOPHINE [Concomitant]
     Active Substance: METHADONE HYDROCHLORIDE
     Dates: start: 20221211
  19. DOLOPHINE [Concomitant]
     Active Substance: METHADONE HYDROCHLORIDE
     Dates: start: 20221212
  20. DOLOPHINE [Concomitant]
     Active Substance: METHADONE HYDROCHLORIDE
     Dates: start: 20221213
  21. DOLOPHINE [Concomitant]
     Active Substance: METHADONE HYDROCHLORIDE
     Dates: start: 20221214
  22. DOLOPHINE [Concomitant]
     Active Substance: METHADONE HYDROCHLORIDE
     Dates: start: 20221215
  23. DOLOPHINE [Concomitant]
     Active Substance: METHADONE HYDROCHLORIDE
     Dates: start: 20221216
  24. DOLOPHINE [Concomitant]
     Active Substance: METHADONE HYDROCHLORIDE
     Dates: start: 20221217

REACTIONS (8)
  - Respiratory syncytial virus infection [Unknown]
  - Bronchiolitis [Unknown]
  - Pulmonary hypoplasia [Unknown]
  - Acute respiratory failure [Unknown]
  - Airway complication of anaesthesia [Unknown]
  - Respiratory tract oedema [Unknown]
  - Staphylococcal infection [Unknown]
  - Product dose omission issue [Unknown]
